FAERS Safety Report 5367505-0 (Version None)
Quarter: 2007Q2

REPORT INFORMATION
  Report Type: 
  Country: None (occurrence: None)
  Receive Date: 20070622
  Receipt Date: 20061017
  Transmission Date: 20071010
  Serious: No
  Sender: FDA-Public Use
  Company Number: US-ASTRAZENECA-2006UW19985

PATIENT
  Sex: Female

DRUGS (2)
  1. PULMICORT [Suspect]
     Route: 055
  2. ASMANEX TWISTHALER [Concomitant]
     Indication: ASTHMA
     Route: 055

REACTIONS (2)
  - HEADACHE [None]
  - ORAL CANDIDIASIS [None]
